FAERS Safety Report 15338117 (Version 2)
Quarter: 2020Q3

REPORT INFORMATION
  Report Type: Other
  Country: DE (occurrence: DE)
  Receive Date: 20180831
  Receipt Date: 20200916
  Transmission Date: 20201102
  Serious: Yes (Hospitalization, Other)
  Sender: FDA-Public Use
  Company Number: DE-MACLEODS PHARMACEUTICALS US LTD-MAC2018016444

PATIENT

DRUGS (6)
  1. BISOPROLOL DEXCEL [Interacting]
     Active Substance: BISOPROLOL FUMARATE
     Indication: PRODUCT USED FOR UNKNOWN INDICATION
     Dosage: 2.5 MILLIGRAM, QD,BISOPROLOL DEXCEL (BISOPROLOL FUMARATE), (IN MORNING)MEDICATION ERROR,ABUSE/MISUSE
     Route: 065
  2. VALSARTAN 40 MG [Suspect]
     Active Substance: VALSARTAN
     Indication: PRODUCT USED FOR UNKNOWN INDICATION
     Dosage: 40 MILLIGRAM, QD, VALSARTAN DURA (VALSARTAN)MISUSE, ABUSE
     Route: 065
     Dates: start: 201803
  3. ATORVASTATIN BASICS [Interacting]
     Active Substance: ATORVASTATIN
     Indication: PRODUCT USED FOR UNKNOWN INDICATION
     Dosage: UNK,ATORVASTATIN BASICS (ATORVASTATIN) MISUSE,ABUSE, MEDICATION ERROE, OVERDOSE
     Route: 065
  4. RAMIPRIL 1A PHARMA [Interacting]
     Active Substance: RAMIPRIL
     Indication: PRODUCT USED FOR UNKNOWN INDICATION
     Dosage: UNK, RAMIPRIL 1A PHARMA (RAMIPRIL) MISUSE, MEDICATION ERROR
     Route: 065
  5. ASPIRIN. [Interacting]
     Active Substance: ASPIRIN
     Indication: PRODUCT USED FOR UNKNOWN INDICATION
     Dosage: 100 MILLIGRAM, QD, ASS 1A PHARMA (ACETYLSALICYLIC ACID) MEDICATION ERROR, OVERDOSE, ABUSE
     Route: 065
  6. BRILIQUE [Interacting]
     Active Substance: TICAGRELOR
     Indication: PRODUCT USED FOR UNKNOWN INDICATION
     Dosage: 90 MILLIGRAM,BRILIQUE (TICAGRELOR) BID (IN MORNING AND EVENING)
     Route: 048

REACTIONS (14)
  - Drug interaction [Unknown]
  - Fatigue [Unknown]
  - Myocardial infarction [Unknown]
  - Gingival ulceration [Unknown]
  - Medication error [Unknown]
  - Renal cell carcinoma [Unknown]
  - Mucosal dryness [Unknown]
  - Drug abuse [Unknown]
  - Headache [Unknown]
  - Contusion [Unknown]
  - Cough [Unknown]
  - Abdominal pain upper [Unknown]
  - Nausea [Unknown]
  - Overdose [Unknown]

NARRATIVE: CASE EVENT DATE: 2015
